FAERS Safety Report 25733921 (Version 3)
Quarter: 2025Q4

REPORT INFORMATION
  Report Type: Spontaneous
  Country: US (occurrence: US)
  Receive Date: 20250828
  Receipt Date: 20251021
  Transmission Date: 20260118
  Serious: Yes (Hospitalization, Other)
  Sender: AUROBINDO
  Company Number: US-AUROBINDO-AUR-APL-2025-043098

PATIENT
  Age: 47 Year
  Sex: Male
  Weight: 99.7 kg

DRUGS (1)
  1. SERTRALINE HYDROCHLORIDE [Suspect]
     Active Substance: SERTRALINE HYDROCHLORIDE
     Indication: Panic attack
     Dosage: UNK UNK, ONCE A DAY
     Route: 065

REACTIONS (5)
  - Psychotic disorder [Unknown]
  - Pain [Unknown]
  - Drug ineffective [Unknown]
  - Suicidal ideation [Recovered/Resolved]
  - Emotional distress [Recovered/Resolved]
